FAERS Safety Report 8063412-3 (Version None)
Quarter: 2012Q1

REPORT INFORMATION
  Report Type: 
  Country: None (occurrence: None)
  Receive Date: 20120123
  Receipt Date: 20120110
  Transmission Date: 20120608
  Serious: Yes (Other)
  Sender: FDA-Public Use
  Company Number: PHHY2011JP111370

PATIENT
  Age: 75 Year
  Sex: Female

DRUGS (4)
  1. ZOMETA [Suspect]
     Indication: METASTASES TO BONE
     Dosage: UNK
     Route: 042
     Dates: start: 20080601, end: 20090201
  2. TAMOXIFEN CITRATE [Concomitant]
  3. AROMASIN [Concomitant]
     Route: 048
  4. NOLVADEX [Concomitant]
     Route: 048

REACTIONS (4)
  - BREAST CANCER RECURRENT [None]
  - NEOPLASM PROGRESSION [None]
  - NEOPLASM MALIGNANT [None]
  - ADENOCARCINOMA [None]
